FAERS Safety Report 6224661-X (Version None)
Quarter: 2009Q2

REPORT INFORMATION
  Report Type: 
  Country: None (occurrence: None)
  Receive Date: 20090612
  Receipt Date: 20090324
  Transmission Date: 20091009
  Serious: No
  Sender: FDA-Public Use
  Company Number: US-ABBOTT-09P-163-0564752-00

PATIENT
  Sex: Female
  Weight: 64.922 kg

DRUGS (14)
  1. HUMIRA [Suspect]
     Indication: RHEUMATOID ARTHRITIS
     Route: 058
     Dates: start: 20090201
  2. HUMIRA [Suspect]
     Dates: start: 20040101, end: 20090201
  3. COUMADIN [Concomitant]
     Indication: ATRIAL FIBRILLATION
     Route: 048
  4. PREDNISONE [Concomitant]
     Indication: RHEUMATOID ARTHRITIS
     Route: 050
  5. VYTORIN [Concomitant]
     Indication: BLOOD CHOLESTEROL INCREASED
  6. LOTRIL [Concomitant]
     Indication: HYPERTENSION
     Route: 048
  7. GLUCOPHAGE [Concomitant]
     Indication: TYPE 2 DIABETES MELLITUS
  8. SYNTHROID [Concomitant]
     Indication: HYPOTHYROIDISM
  9. LOPRESSOR [Concomitant]
     Indication: HYPERTENSION
  10. AMARYL [Concomitant]
     Indication: TYPE 2 DIABETES MELLITUS
  11. AROMASIN [Concomitant]
     Indication: NEOPLASM PROPHYLAXIS
     Route: 048
  12. MICARDIS [Concomitant]
     Indication: HYPERTENSION
  13. CALCIUM [Concomitant]
     Indication: BONE DISORDER
     Dosage: UNKNOWN
  14. OCUVIT [Concomitant]
     Indication: EYE DISORDER
     Dosage: UNKNOWN
     Route: 048

REACTIONS (2)
  - INJECTION SITE HAEMATOMA [None]
  - INJECTION SITE HAEMORRHAGE [None]
